FAERS Safety Report 18668637 (Version 5)
Quarter: 2021Q2

REPORT INFORMATION
  Report Type: Other
  Country: US (occurrence: US)
  Receive Date: 20201228
  Receipt Date: 20210630
  Transmission Date: 20210717
  Serious: Yes (Other)
  Sender: FDA-Public Use
  Company Number: US-ROCHE-2716329

PATIENT
  Sex: Female
  Weight: 68.1 kg

DRUGS (4)
  1. ACTEMRA [Suspect]
     Active Substance: TOCILIZUMAB
  2. ACTEMRA [Suspect]
     Active Substance: TOCILIZUMAB
     Indication: ARTERITIS
     Dosage: ACTPEN
     Route: 058
     Dates: start: 202011
  3. ACTEMRA [Suspect]
     Active Substance: TOCILIZUMAB
     Indication: COGAN^S SYNDROME
  4. ACTEMRA [Suspect]
     Active Substance: TOCILIZUMAB

REACTIONS (3)
  - Off label use [Unknown]
  - Blindness [Unknown]
  - Illness [Unknown]
